FAERS Safety Report 15823677 (Version 1)
Quarter: 2019Q1

REPORT INFORMATION
  Report Type: Report from Study
  Country: US (occurrence: US)
  Receive Date: 20190114
  Receipt Date: 20190114
  Transmission Date: 20190417
  Serious: Yes (Death)
  Sender: FDA-Public Use
  Company Number: US-EXELIXIS-CABO-19018141

PATIENT
  Age: 57 Year
  Sex: Male

DRUGS (19)
  1. ALDACTONE [Concomitant]
     Active Substance: SPIRONOLACTONE
  2. PROPAFENONE. [Concomitant]
     Active Substance: PROPAFENONE
  3. NASONEX [Concomitant]
     Active Substance: MOMETASONE FUROATE
  4. CHLORTHALIDONE. [Concomitant]
     Active Substance: CHLORTHALIDONE
  5. NOVOLOG [Concomitant]
     Active Substance: INSULIN ASPART
  6. FERROUS FUMARATE [Concomitant]
     Active Substance: FERROUS FUMARATE
  7. SYNTHROID [Concomitant]
     Active Substance: LEVOTHYROXINE SODIUM
  8. XARELTO [Concomitant]
     Active Substance: RIVAROXABAN
  9. VITAMIN D3 [Concomitant]
     Active Substance: CHOLECALCIFEROL
  10. DILTIAZEM. [Concomitant]
     Active Substance: DILTIAZEM
  11. ALLOPURINOL. [Concomitant]
     Active Substance: ALLOPURINOL
  12. CABOMETYX [Suspect]
     Active Substance: CABOZANTINIB S-MALATE
     Indication: RENAL CANCER
     Dosage: 60 MG, QD
     Route: 048
     Dates: start: 20180823
  13. TRICOR [Concomitant]
     Active Substance: FENOFIBRATE
  14. LISINOPRIL. [Concomitant]
     Active Substance: LISINOPRIL
  15. HYDROCODONE/ACETAMINOPHEN [Concomitant]
     Active Substance: ACETAMINOPHEN\HYDROCODONE
  16. LOPRESSOR [Concomitant]
     Active Substance: METOPROLOL TARTRATE
  17. LIPITOR [Concomitant]
     Active Substance: ATORVASTATIN CALCIUM
  18. LANTUS [Concomitant]
     Active Substance: INSULIN GLARGINE
  19. PREDNISONE. [Concomitant]
     Active Substance: PREDNISONE

REACTIONS (1)
  - Death [Fatal]

NARRATIVE: CASE EVENT DATE: 20190102
